FAERS Safety Report 10448142 (Version 2)
Quarter: 2014Q4

REPORT INFORMATION
  Report Type: Spontaneous
  Country: US (occurrence: US)
  Receive Date: 20140911
  Receipt Date: 20141028
  Transmission Date: 20150528
  Serious: Yes (Other)
  Sender: FDA-Public Use
  Company Number: US-GLAXOSMITHKLINE-A1088097A

PATIENT
  Age: 65 Year
  Sex: Female

DRUGS (2)
  1. VOTRIENT [Suspect]
     Active Substance: PAZOPANIB HYDROCHLORIDE
     Dosage: 200 MG, U
     Dates: start: 20140930, end: 20141001
  2. VOTRIENT [Suspect]
     Active Substance: PAZOPANIB HYDROCHLORIDE
     Indication: SARCOMA
     Dosage: 400 MG UNKNOWN DOSING
     Route: 065
     Dates: start: 20140729, end: 20140922

REACTIONS (11)
  - Impaired healing [Not Recovered/Not Resolved]
  - Pain in extremity [Unknown]
  - Surgery [Unknown]
  - Post procedural complication [Not Recovered/Not Resolved]
  - Neoplasm [Not Recovered/Not Resolved]
  - Heart rate irregular [Unknown]
  - Decreased appetite [Unknown]
  - Fatigue [Unknown]
  - Diarrhoea [Unknown]
  - Tumour haemorrhage [Not Recovered/Not Resolved]
  - Abdominal pain upper [Unknown]

NARRATIVE: CASE EVENT DATE: 20140929
